FAERS Safety Report 19212633 (Version 1)
Quarter: 2021Q2

REPORT INFORMATION
  Report Type: Spontaneous
  Country: SE (occurrence: SE)
  Receive Date: 20210504
  Receipt Date: 20210504
  Transmission Date: 20210717
  Serious: Yes (Other)
  Sender: FDA-Public Use
  Company Number: SE-PFIZER INC-2021484376

PATIENT
  Age: 47 Year
  Sex: Male

DRUGS (3)
  1. PREDNISOLON [PREDNISOLONE] [Concomitant]
     Active Substance: PREDNISOLONE
     Dosage: 2.5 MG
     Route: 065
     Dates: start: 20100204
  2. METHOTREXATE SODIUM. [Suspect]
     Active Substance: METHOTREXATE SODIUM
     Indication: PSORIATIC ARTHROPATHY
     Dosage: 15 MG
     Route: 065
     Dates: start: 20100204, end: 20210325
  3. AMGEVITA [Suspect]
     Active Substance: ADALIMUMAB
     Indication: PSORIATIC ARTHROPATHY
     Dosage: 40 MG
     Route: 065
     Dates: start: 20200403, end: 20210325

REACTIONS (1)
  - Rectosigmoid cancer [Unknown]

NARRATIVE: CASE EVENT DATE: 20210325
